FAERS Safety Report 4468141-0 (Version None)
Quarter: 2004Q4

REPORT INFORMATION
  Report Type: 
  Country: None (occurrence: None)
  Receive Date: 20041004
  Receipt Date: 20041004
  Transmission Date: 20050328
  Serious: Yes (Life-Threatening, Disabling)
  Sender: FDA-Public Use
  Company Number: None

PATIENT
  Age: 43 Year
  Sex: Male
  Weight: 106.5953 kg

DRUGS (1)
  1. VIOXX [Suspect]
     Indication: ARTHRALGIA
     Dosage: DONT REMEMBER
     Route: 065
     Dates: start: 20000502, end: 20000601

REACTIONS (2)
  - CONVULSION [None]
  - MYOCARDIAL INFARCTION [None]
